FAERS Safety Report 16542787 (Version 1)
Quarter: 2019Q3

REPORT INFORMATION
  Report Type: Spontaneous
  Country: BR (occurrence: BR)
  Receive Date: 20190709
  Receipt Date: 20190709
  Transmission Date: 20191004
  Serious: Yes (Other)
  Sender: FDA-Public Use
  Company Number: BR-AMGEN-BRASP2019108152

PATIENT

DRUGS (2)
  1. ARA-C [Concomitant]
     Active Substance: CYTARABINE
     Indication: AUTOLOGOUS HAEMATOPOIETIC STEM CELL TRANSPLANT
     Dosage: 0.4 GRAM PER SQUARE METRE, BID FOR 2 DAYS
     Route: 042
  2. FILGRASTIM [Suspect]
     Active Substance: FILGRASTIM
     Indication: AUTOLOGOUS HAEMATOPOIETIC STEM CELL TRANSPLANT
     Dosage: 12 MICROGRAM/KILOGRAM, QD (FROM 6-13 DAYS)
     Route: 058

REACTIONS (9)
  - Asthenia [Unknown]
  - Thrombocytopenia [Unknown]
  - Hypersensitivity [Unknown]
  - Diarrhoea [Unknown]
  - Neutropenia [Unknown]
  - Bone pain [Unknown]
  - Dyspepsia [Unknown]
  - Blood creatinine increased [Unknown]
  - Off label use [Unknown]
